FAERS Safety Report 7916000-0 (Version None)
Quarter: 2011Q4

REPORT INFORMATION
  Report Type: 
  Country: None (occurrence: None)
  Receive Date: 20111115
  Receipt Date: 20111031
  Transmission Date: 20120403
  Serious: Yes (Death, Hospitalization)
  Sender: FDA-Public Use
  Company Number: NL-WATSON-2011-19210

PATIENT
  Age: 21 Year
  Sex: Female

DRUGS (1)
  1. PROPAFENONE HCL [Suspect]
     Indication: INTENTIONAL OVERDOSE
     Dosage: 4500 MG, SINGLE
     Route: 048

REACTIONS (11)
  - SHOCK [None]
  - TONIC CLONIC MOVEMENTS [None]
  - SINUS BRADYCARDIA [None]
  - CARDIAC ARREST [None]
  - ELECTROCARDIOGRAM QRS COMPLEX PROLONGED [None]
  - HAEMODYNAMIC INSTABILITY [None]
  - TACHYCARDIA [None]
  - INTENTIONAL OVERDOSE [None]
  - ATRIOVENTRICULAR BLOCK FIRST DEGREE [None]
  - VOMITING [None]
  - CIRCULATORY COLLAPSE [None]
